FAERS Safety Report 14760602 (Version 7)
Quarter: 2022Q4

REPORT INFORMATION
  Report Type: Spontaneous
  Country: US (occurrence: None)
  Receive Date: 20180414
  Receipt Date: 20221004
  Transmission Date: 20230112
  Serious: Yes (Other)
  Sender: FDA-Public Use
  Company Number: 2018SE44497

PATIENT
  Age: 61 Year
  Sex: Female
  Weight: 65.8 kg

DRUGS (42)
  1. NEXIUM [Suspect]
     Active Substance: ESOMEPRAZOLE MAGNESIUM
     Indication: Gastrooesophageal reflux disease
     Route: 048
     Dates: start: 2008, end: 2017
  2. NEXIUM [Suspect]
     Active Substance: ESOMEPRAZOLE MAGNESIUM
     Indication: Gastrooesophageal reflux disease
     Route: 048
     Dates: start: 2016
  3. NEXIUM [Suspect]
     Active Substance: ESOMEPRAZOLE MAGNESIUM
     Indication: Gastrooesophageal reflux disease
     Dosage: GENERIC
     Route: 065
     Dates: start: 2001, end: 2017
  4. PRILOSEC [Suspect]
     Active Substance: OMEPRAZOLE MAGNESIUM
     Indication: Gastrooesophageal reflux disease
     Route: 048
     Dates: start: 1990
  5. PRILOSEC [Suspect]
     Active Substance: OMEPRAZOLE MAGNESIUM
     Indication: Gastrooesophageal reflux disease
     Dosage: GENERIC
     Route: 065
     Dates: start: 2013, end: 2016
  6. DEXILANT [Suspect]
     Active Substance: DEXLANSOPRAZOLE
     Indication: Gastrooesophageal reflux disease
     Route: 065
     Dates: start: 2010, end: 2017
  7. DEXILANT [Suspect]
     Active Substance: DEXLANSOPRAZOLE
     Indication: Gastrooesophageal reflux disease
     Route: 065
     Dates: start: 2017
  8. PROTONIX [Suspect]
     Active Substance: PANTOPRAZOLE SODIUM
     Indication: Gastrooesophageal reflux disease
     Route: 065
     Dates: start: 2010, end: 2017
  9. PROTONIX [Suspect]
     Active Substance: PANTOPRAZOLE SODIUM
     Indication: Gastrooesophageal reflux disease
     Route: 065
     Dates: start: 2017
  10. PROTONIX [Suspect]
     Active Substance: PANTOPRAZOLE SODIUM
     Indication: Gastrooesophageal reflux disease
     Route: 065
     Dates: start: 20181002
  11. ALBUTEROL [Concomitant]
     Active Substance: ALBUTEROL
     Indication: Chronic obstructive pulmonary disease
     Dates: start: 2011
  12. SIMVASTATIN [Concomitant]
     Active Substance: SIMVASTATIN
     Indication: Blood cholesterol increased
     Dates: start: 2010
  13. ZETIA [Concomitant]
     Active Substance: EZETIMIBE
     Dates: start: 2010
  14. COMBIVENT [Concomitant]
     Active Substance: ALBUTEROL SULFATE\IPRATROPIUM BROMIDE
     Indication: Chronic obstructive pulmonary disease
     Dates: start: 2011
  15. SYNTHROID [Concomitant]
     Active Substance: LEVOTHYROXINE SODIUM
     Indication: Hypothyroidism
     Dates: start: 2011
  16. LISINOPRIL [Concomitant]
     Active Substance: LISINOPRIL
     Dates: start: 2012
  17. METOPROLOL [Concomitant]
     Active Substance: METOPROLOL
     Dates: start: 2010
  18. FUROSEMIDE [Concomitant]
     Active Substance: FUROSEMIDE
     Indication: Fluid retention
     Dates: start: 2010
  19. PREDNISONE [Concomitant]
     Active Substance: PREDNISONE
     Indication: Inflammation
     Dates: start: 2011
  20. ZOLPIDEM [Concomitant]
     Active Substance: ZOLPIDEM TARTRATE
     Indication: Sleep disorder
     Dates: start: 2011
  21. VITAMIN D [Concomitant]
     Active Substance: VITAMIN D NOS
     Indication: Deficiency anaemia
     Dates: start: 2016
  22. CALCIUM [Concomitant]
     Active Substance: CALCIUM
     Dates: start: 2016
  23. ASPIRIN [Concomitant]
     Active Substance: ASPIRIN
     Dates: start: 2011
  24. TYLENOL [Concomitant]
     Active Substance: ACETAMINOPHEN
     Indication: Anticoagulant therapy
     Dates: start: 2017
  25. TYLENOL [Concomitant]
     Active Substance: ACETAMINOPHEN
     Indication: Pain
     Dates: start: 2017
  26. VITAMIN B12 [Concomitant]
     Active Substance: CYANOCOBALAMIN
     Indication: General physical health deterioration
     Dates: start: 2016
  27. IRON [Concomitant]
     Active Substance: IRON
     Indication: Deficiency anaemia
     Dates: start: 2016
  28. ZANTAC 150 (RANITIDINE HYDROCHLORIDE) [Concomitant]
     Active Substance: RANITIDINE HYDROCHLORIDE
     Dates: start: 2017
  29. RANITIDINE [Concomitant]
     Active Substance: RANITIDINE
     Dates: start: 2017
  30. TICAGRELOR [Concomitant]
     Active Substance: TICAGRELOR
  31. FERROUS SULFATE [Concomitant]
     Active Substance: FERROUS SULFATE
  32. ALENDRONATE [Concomitant]
     Active Substance: ALENDRONATE SODIUM
  33. TOPROL XL [Concomitant]
     Active Substance: METOPROLOL SUCCINATE
  34. FOLIC ACID [Concomitant]
     Active Substance: FOLIC ACID
  35. PLAVIX [Concomitant]
     Active Substance: CLOPIDOGREL BISULFATE
  36. AMBIEN [Concomitant]
     Active Substance: ZOLPIDEM TARTRATE
  37. NITROSTAT [Concomitant]
     Active Substance: NITROGLYCERIN
  38. IMDUR [Concomitant]
     Active Substance: ISOSORBIDE MONONITRATE
  39. AMOXICILLIN [Concomitant]
     Active Substance: AMOXICILLIN
  40. DALIRESP [Concomitant]
     Active Substance: ROFLUMILAST
  41. CYMBALTA [Concomitant]
     Active Substance: DULOXETINE HYDROCHLORIDE
  42. PROAIR HFA [Concomitant]
     Active Substance: ALBUTEROL SULFATE

REACTIONS (5)
  - Chronic kidney disease [Not Recovered/Not Resolved]
  - Nephropathy [Not Recovered/Not Resolved]
  - Acute kidney injury [Unknown]
  - Renal failure [Unknown]
  - Tubulointerstitial nephritis [Not Recovered/Not Resolved]

NARRATIVE: CASE EVENT DATE: 20080101
